FAERS Safety Report 20917128 (Version 2)
Quarter: 2022Q2

REPORT INFORMATION
  Report Type: Report from Study
  Country: JP (occurrence: JP)
  Receive Date: 20220606
  Receipt Date: 20220628
  Transmission Date: 20220720
  Serious: Yes (Hospitalization, Other)
  Sender: FDA-Public Use
  Company Number: JP-ONO-2022JP014890

PATIENT
  Age: 70 Year
  Sex: Male
  Weight: 67.9 kg

DRUGS (11)
  1. NIVOLUMAB [Suspect]
     Active Substance: NIVOLUMAB
     Indication: Non-small cell lung cancer recurrent
     Route: 042
  2. PEMETREXED DISODIUM [Suspect]
     Active Substance: PEMETREXED DISODIUM
     Indication: Non-small cell lung cancer recurrent
     Dosage: UNK
     Route: 065
     Dates: start: 20220428
  3. LANSOPRAZOLE [Concomitant]
     Active Substance: LANSOPRAZOLE
     Indication: Gastritis prophylaxis
     Dosage: 15 MG, EVERYDAY
     Route: 048
     Dates: start: 20190704
  4. DESLORATADINE [Concomitant]
     Active Substance: DESLORATADINE
     Indication: Pruritus
     Dosage: 5 MG, EVERYDAY
     Route: 048
     Dates: start: 20200309
  5. LYRICA [Concomitant]
     Active Substance: PREGABALIN
     Indication: Neuropathy peripheral
     Dosage: 75 MG, Q12H
     Route: 048
     Dates: start: 20190416
  6. REBAMIPIDE [Concomitant]
     Active Substance: REBAMIPIDE
     Indication: Gastritis
     Dosage: 100 MG, Q8H
     Route: 048
     Dates: start: 20201010
  7. CALONAL [Concomitant]
     Active Substance: ACETAMINOPHEN
     Indication: Neuropathy peripheral
     Dosage: 75 MG, Q12H
     Route: 048
     Dates: start: 20190524
  8. CELECOXIB [Concomitant]
     Active Substance: CELECOXIB
     Indication: Neuropathy peripheral
     Dosage: 100 MG, Q12H
     Route: 048
     Dates: start: 20190522
  9. SENNOSIDES A AND B [Concomitant]
     Active Substance: SENNOSIDES A AND B
     Indication: Constipation
     Dosage: 24 MG, EVERYDAY
     Route: 048
     Dates: start: 20190407
  10. ASVERIN [Concomitant]
     Indication: Cough
     Dosage: 40 MG, PRN
     Route: 048
     Dates: start: 20220127
  11. VITAMINS [Concomitant]
     Active Substance: VITAMINS
     Indication: Premedication
     Dosage: 1 G, EVERYDAY
     Route: 048
     Dates: start: 20220407

REACTIONS (1)
  - Malignant ascites [Not Recovered/Not Resolved]

NARRATIVE: CASE EVENT DATE: 20220528
